FAERS Safety Report 8361800-9 (Version None)
Quarter: 2012Q2

REPORT INFORMATION
  Report Type: 
  Country: None (occurrence: None)
  Receive Date: 20120515
  Receipt Date: 20120508
  Transmission Date: 20120825
  Serious: Yes (Hospitalization, Congenital Anomaly)
  Sender: FDA-Public Use
  Company Number: US-GLAXOSMITHKLINE-A0977545A

PATIENT
  Sex: Female

DRUGS (1)
  1. PAXIL [Suspect]
     Indication: DEPRESSION
     Route: 064

REACTIONS (9)
  - JOINT DISLOCATION [None]
  - FOETAL EXPOSURE DURING PREGNANCY [None]
  - NEUROGENIC BOWEL [None]
  - SPINA BIFIDA OCCULTA [None]
  - DERMOID CYST [None]
  - NEUROGENIC BLADDER [None]
  - SCOLIOSIS [None]
  - PARAPLEGIA [None]
  - CONGENITAL ANOMALY [None]
